FAERS Safety Report 7267664-9 (Version None)
Quarter: 2011Q1

REPORT INFORMATION
  Report Type: 
  Country: None (occurrence: None)
  Receive Date: 20110201
  Receipt Date: 20110121
  Transmission Date: 20110831
  Serious: Yes (Hospitalization)
  Sender: FDA-Public Use
  Company Number: JP-JNJFOC-20091205386

PATIENT
  Sex: Female
  Weight: 29.1 kg

DRUGS (13)
  1. REMICADE [Suspect]
     Route: 042
  2. REMICADE [Suspect]
     Route: 042
  3. REMICADE [Suspect]
     Route: 042
  4. REMICADE [Suspect]
     Route: 042
  5. REMICADE [Suspect]
     Route: 042
  6. REMICADE [Suspect]
     Route: 042
  7. ELENTAL [Concomitant]
     Indication: CROHN'S DISEASE
     Route: 048
  8. REMICADE [Suspect]
     Route: 042
  9. REMICADE [Suspect]
     Route: 042
  10. REMICADE [Suspect]
     Indication: CROHN'S DISEASE
     Route: 042
  11. REMICADE [Suspect]
     Dosage: TOTAL # OF INFUSIONS = 10
     Route: 042
  12. BIO-THREE [Concomitant]
     Indication: CROHN'S DISEASE
     Route: 048
  13. PENTASA [Concomitant]
     Indication: CROHN'S DISEASE
     Route: 048

REACTIONS (6)
  - SAPHO SYNDROME [None]
  - FEELING ABNORMAL [None]
  - ALOPECIA [None]
  - DECREASED APPETITE [None]
  - DIARRHOEA [None]
  - CHILLS [None]
